FAERS Safety Report 24849845 (Version 1)
Quarter: 2025Q1

REPORT INFORMATION
  Report Type: Spontaneous
  Country: US (occurrence: None)
  Receive Date: 20250115
  Receipt Date: 20250115
  Transmission Date: 20250408
  Serious: Yes (Hospitalization, Disabling)
  Sender: FDA-CTU
  Company Number: None

PATIENT
  Age: 63 Year
  Sex: Male
  Weight: 76.5 kg

DRUGS (11)
  1. PANTOPRAZOLE SODIUM [Suspect]
     Active Substance: PANTOPRAZOLE SODIUM
     Dates: start: 20240202, end: 20240820
  2. DUPIXENT [Suspect]
     Active Substance: DUPILUMAB
  3. PREDNISONE [Suspect]
     Active Substance: PREDNISONE
  4. AMLODIPINE BESYLATE [Concomitant]
     Active Substance: AMLODIPINE BESYLATE
  5. LATANOPROST [Concomitant]
     Active Substance: LATANOPROST
  6. DORZOLAMIDE\TIMOLOL [Concomitant]
     Active Substance: DORZOLAMIDE\TIMOLOL
  7. ALLEGRA [Concomitant]
     Active Substance: FEXOFENADINE HYDROCHLORIDE
  8. FLONASE [Concomitant]
     Active Substance: FLUTICASONE PROPIONATE
  9. VITAMINS [Concomitant]
     Active Substance: VITAMINS
  10. CALCIUM [Concomitant]
     Active Substance: CALCIUM
  11. VITAMIN D [Concomitant]
     Active Substance: VITAMIN D NOS

REACTIONS (18)
  - Rash pruritic [None]
  - Rash [None]
  - Pain [None]
  - Erythema [None]
  - Diarrhoea [None]
  - Dizziness [None]
  - Gait disturbance [None]
  - Insomnia [None]
  - Dermatitis atopic [None]
  - Peripheral swelling [None]
  - Therapy cessation [None]
  - Burning sensation [None]
  - Asthenia [None]
  - Decreased appetite [None]
  - Weight decreased [None]
  - Gastrointestinal disorder [None]
  - Visual acuity reduced [None]
  - Hypertension [None]

NARRATIVE: CASE EVENT DATE: 20240301
